FAERS Safety Report 7506416-9 (Version None)
Quarter: 2011Q2

REPORT INFORMATION
  Report Type: 
  Country: None (occurrence: None)
  Receive Date: 20110526
  Receipt Date: 20110525
  Transmission Date: 20111010
  Serious: Yes (Death, Life-Threatening, Other)
  Sender: FDA-Public Use
  Company Number: GB-PFIZER INC-2011080349

PATIENT
  Age: 54 Year
  Sex: Male

DRUGS (5)
  1. CYTARABINE [Suspect]
     Indication: ACUTE MYELOID LEUKAEMIA RECURRENT
     Dosage: 30 MG, THRICE WEEKLY
     Route: 037
  2. METHOTREXATE SODIUM [Suspect]
     Indication: ACUTE MYELOID LEUKAEMIA RECURRENT
     Dosage: 12.5 MG, THRICE WEEKLY
     Route: 037
  3. IDARUBICIN HCL [Suspect]
     Indication: ACUTE MYELOID LEUKAEMIA RECURRENT
  4. HYDROCORTISONE SODIUM PHOSPHATE [Suspect]
     Indication: ACUTE MYELOID LEUKAEMIA RECURRENT
     Dosage: 12.5 MG, THRICE WEEKLY
     Route: 037
  5. ETOPOSIDE [Suspect]
     Indication: ACUTE MYELOID LEUKAEMIA RECURRENT

REACTIONS (2)
  - SEPTIC SHOCK [None]
  - FEBRILE NEUTROPENIA [None]
